FAERS Safety Report 9826086 (Version 1)
Quarter: 2013Q4

REPORT INFORMATION
  Report Type: Spontaneous
  Country: US (occurrence: None)
  Receive Date: 20131108
  Receipt Date: 20131108
  Transmission Date: 20140711
  Serious: No
  Sender: FDA-Public Use
  Company Number: 2013034805

PATIENT
  Age: 50 Year
  Sex: 0

DRUGS (2)
  1. MONONINE [Suspect]
     Indication: FACTOR IX DEFICIENCY
  2. BENEFIX [Suspect]

REACTIONS (1)
  - Factor IX inhibition [None]
